FAERS Safety Report 12037416 (Version 1)
Quarter: 2016Q1

REPORT INFORMATION
  Report Type: Report from Study
  Country: US (occurrence: US)
  Receive Date: 20160208
  Receipt Date: 20160208
  Transmission Date: 20160526
  Serious: Yes (Other)
  Sender: FDA-Public Use
  Company Number: US-ROCHE-1705762

PATIENT

DRUGS (1)
  1. SOMATROPIN [Suspect]
     Active Substance: SOMATROPIN
     Indication: GROWTH HORMONE DEFICIENCY
     Route: 065

REACTIONS (32)
  - Adrenocortical insufficiency acute [Unknown]
  - Oedema peripheral [Unknown]
  - Angiopathy [Unknown]
  - Cardiac disorder [Unknown]
  - Tooth infection [Unknown]
  - Arthralgia [Unknown]
  - Neoplasm [Unknown]
  - Urinary tract disorder [Unknown]
  - Meningioma [Unknown]
  - Seizure [Unknown]
  - Eye disorder [Unknown]
  - Gastrointestinal disorder [Unknown]
  - Malnutrition [Unknown]
  - Nervous system disorder [Unknown]
  - Respiratory disorder [Unknown]
  - Poisoning [Unknown]
  - Type 2 diabetes mellitus [Unknown]
  - Hypotension [Unknown]
  - Musculoskeletal disorder [Unknown]
  - Renal disorder [Unknown]
  - Skin disorder [Unknown]
  - Arrhythmia supraventricular [Unknown]
  - Endocrine disorder [Unknown]
  - Metabolic disorder [Unknown]
  - Colon cancer [Unknown]
  - Ovarian cancer [Unknown]
  - Infection [Unknown]
  - Mental disorder [Unknown]
  - Breast disorder [Unknown]
  - Injury [Unknown]
  - Osteoarthritis [Unknown]
  - Hepatobiliary disease [Unknown]
